FAERS Safety Report 18848864 (Version 1)
Quarter: 2021Q1

REPORT INFORMATION
  Report Type: Spontaneous
  Country: US (occurrence: US)
  Receive Date: 20210204
  Receipt Date: 20210204
  Transmission Date: 20210419
  Serious: Yes (Other)
  Sender: FDA-Public Use
  Company Number: US-PFIZER INC-2021106410

PATIENT
  Age: 63 Year
  Sex: Female

DRUGS (2)
  1. DILANTIN [Suspect]
     Active Substance: PHENYTOIN
     Dosage: 1 DF (1 TABLET)
  2. DILANTIN [Suspect]
     Active Substance: PHENYTOIN
     Dosage: 4 DF, DAILY (4 TABLETS A DAY)

REACTIONS (2)
  - Seizure [Unknown]
  - Condition aggravated [Unknown]
